FAERS Safety Report 9130456 (Version 1)
Quarter: 2013Q1

REPORT INFORMATION
  Report Type: Spontaneous
  Country: US (occurrence: US)
  Receive Date: 20130301
  Receipt Date: 20130301
  Transmission Date: 20140127
  Serious: No
  Sender: FDA-Public Use
  Company Number: US-009507513-1302USA013172

PATIENT
  Age: 30 Year
  Sex: Female

DRUGS (1)
  1. NUVARING [Suspect]
     Indication: CONTRACEPTION
     Dosage: UNK, 0.015/0.12 MG
     Route: 067

REACTIONS (3)
  - Unintended pregnancy [Recovered/Resolved]
  - Device expulsion [Unknown]
  - Product quality issue [Unknown]
